FAERS Safety Report 24094356 (Version 1)
Quarter: 2024Q3

REPORT INFORMATION
  Report Type: Spontaneous
  Country: US (occurrence: US)
  Receive Date: 20240716
  Receipt Date: 20240716
  Transmission Date: 20241016
  Serious: Yes (Other)
  Sender: DR REDDYS
  Company Number: US-DRL-USA-LIT/USA/24/0010268

PATIENT
  Age: 70 Year
  Sex: Female

DRUGS (4)
  1. CYCLOSPORINE [Suspect]
     Active Substance: CYCLOSPORINE
     Indication: Lichen planus
  2. TACROLIMUS [Concomitant]
     Active Substance: TACROLIMUS
     Indication: Lichen planus
     Route: 061
  3. MYCOPHENOLATE MOFETIL [Concomitant]
     Active Substance: MYCOPHENOLATE MOFETIL
     Indication: Lichen planus
  4. PREDNISONE [Concomitant]
     Active Substance: PREDNISONE
     Indication: Lichen planus

REACTIONS (1)
  - Drug ineffective for unapproved indication [Unknown]
